FAERS Safety Report 23683446 (Version 2)
Quarter: 2024Q2

REPORT INFORMATION
  Report Type: Spontaneous
  Country: CN (occurrence: CN)
  Receive Date: 20240328
  Receipt Date: 20240405
  Transmission Date: 20240716
  Serious: Yes (Death)
  Sender: FDA-Public Use
  Company Number: CN-GE HEALTHCARE-2024CSU002872

PATIENT

DRUGS (1)
  1. OMNIPAQUE [Suspect]
     Active Substance: IOHEXOL
     Indication: Computerised tomogram
     Dosage: UNK UNK, TOTAL
     Route: 065
     Dates: start: 20240319, end: 20240319

REACTIONS (1)
  - Death [Fatal]

NARRATIVE: CASE EVENT DATE: 20240319
